FAERS Safety Report 5449909-0 (Version None)
Quarter: 2007Q3

REPORT INFORMATION
  Report Type: 
  Country: None (occurrence: None)
  Receive Date: 20070907
  Receipt Date: 20070829
  Transmission Date: 20080115
  Serious: Yes (Hospitalization)
  Sender: FDA-Public Use
  Company Number: 2007SP015907

PATIENT
  Age: 68 Year
  Sex: Female
  Weight: 112.0385 kg

DRUGS (7)
  1. PEG-INTRON [Suspect]
     Indication: HEPATITIS C
     Dosage: 150 MCG; QW; SC
     Route: 058
     Dates: start: 20051201, end: 20060201
  2. RIBAVIRIN [Suspect]
     Indication: HEPATITIS C
     Dosage: 1400 M;QD; PO
     Route: 048
     Dates: start: 20051201, end: 20060201
  3. GABAPENTIN [Concomitant]
  4. NORVASC [Concomitant]
  5. ACCUPRIL [Concomitant]
  6. HYDROCHLOROTHIAZIDE [Concomitant]
  7. AMARYL [Concomitant]

REACTIONS (3)
  - BENIGN LUNG NEOPLASM [None]
  - MUSCLE SPASMS [None]
  - TENDONITIS [None]
